FAERS Safety Report 8442051 (Version 2)
Quarter: 2017Q3

REPORT INFORMATION
  Report Type: Spontaneous
  Country: US (occurrence: US)
  Receive Date: 20120305
  Receipt Date: 20170929
  Transmission Date: 20171128
  Serious: Yes (Hospitalization, Other)
  Sender: FDA-Public Use
  Company Number: US-ASTRAZENECA-2012SE13226

PATIENT
  Age: 801 Month
  Sex: Female
  Weight: 36.3 kg

DRUGS (13)
  1. SINGULAIR [Interacting]
     Active Substance: MONTELUKAST SODIUM
     Indication: DYSPNOEA
     Dosage: DAILY
     Route: 065
  2. ADVAIR HFA [Interacting]
     Active Substance: FLUTICASONE PROPIONATE\SALMETEROL XINAFOATE
     Indication: DYSPNOEA
     Dosage: 500/50 MCG FOUR TIMES A DAY
     Route: 065
  3. ALBUTEROL SULFATE AND IPRATROPIUM BROMIDE [Interacting]
     Active Substance: ALBUTEROL SULFATE\IPRATROPIUM BROMIDE
     Indication: DYSPNOEA
     Dosage: FOUR TIMES A DAY
     Route: 065
  4. CHANTIX [Interacting]
     Active Substance: VARENICLINE TARTRATE
     Indication: SMOKING CESSATION THERAPY
     Route: 048
     Dates: start: 201109, end: 201109
  5. NEXIUM [Suspect]
     Active Substance: ESOMEPRAZOLE MAGNESIUM
     Indication: GASTRIC DISORDER
     Dosage: DAILY
     Route: 048
  6. LEVOTHYROXINE. [Interacting]
     Active Substance: LEVOTHYROXINE
     Indication: THYROID THERAPY
     Route: 065
     Dates: start: 1995
  7. METOCLOPRAMIDE. [Interacting]
     Active Substance: METOCLOPRAMIDE
     Indication: GASTRIC DISORDER
     Dosage: THREE TIMES A DAY
     Route: 065
     Dates: start: 201110
  8. CHANTIX [Interacting]
     Active Substance: VARENICLINE TARTRATE
     Indication: SMOKING CESSATION THERAPY
     Route: 048
     Dates: start: 201201, end: 201201
  9. PROAIR HFA [Interacting]
     Active Substance: ALBUTEROL SULFATE
     Indication: DYSPNOEA
     Dosage: FOUR TIMES A DAY
     Route: 065
  10. KLONOPIN [Interacting]
     Active Substance: CLONAZEPAM
     Indication: NERVOUS SYSTEM DISORDER
     Dosage: FOUR TIMES A DAY
     Route: 065
     Dates: start: 2011
  11. HYDROCODONE [Interacting]
     Active Substance: HYDROCODONE
     Indication: ARTHRALGIA
     Dosage: FOUR TIMES A DAY
     Route: 065
     Dates: start: 2011
  12. ASPIRIN. [Interacting]
     Active Substance: ASPIRIN
     Route: 065
     Dates: start: 201110
  13. CALTRATE [Interacting]
     Active Substance: CALCIUM CARBONATE
     Dosage: TWICE A DAY
     Route: 065
     Dates: start: 201112

REACTIONS (4)
  - Drug interaction [Unknown]
  - Off label use [Unknown]
  - Product use in unapproved indication [Unknown]
  - Cerebrovascular accident [Recovering/Resolving]

NARRATIVE: CASE EVENT DATE: 201109
